FAERS Safety Report 5153040-1 (Version None)
Quarter: 2006Q4

REPORT INFORMATION
  Report Type: 
  Country: None (occurrence: None)
  Receive Date: 20061117
  Receipt Date: 20061102
  Transmission Date: 20070319
  Serious: Yes (Other)
  Sender: FDA-Public Use
  Company Number: NL-AMGEN-UK199969

PATIENT
  Sex: Male

DRUGS (2)
  1. ARANESP [Suspect]
     Route: 058
     Dates: start: 20051101
  2. CYCLOPHOSPHAMIDE [Concomitant]

REACTIONS (1)
  - APLASTIC ANAEMIA [None]
